FAERS Safety Report 6770835-9 (Version None)
Quarter: 2010Q2

REPORT INFORMATION
  Report Type: 
  Country: None (occurrence: None)
  Receive Date: 20100614
  Receipt Date: 20100614
  Transmission Date: 20101027
  Serious: Yes (Other)
  Sender: FDA-Public Use
  Company Number: None

PATIENT
  Age: 62 Year
  Sex: Female

DRUGS (2)
  1. DYSPORT [Suspect]
     Indication: SKIN WRINKLING
     Dosage: 50 UNITS
     Dates: start: 20100401
  2. DYSPORT [Suspect]
     Indication: SKIN WRINKLING
     Dosage: 24 UNITS
     Dates: start: 20100412

REACTIONS (12)
  - ASTHENIA [None]
  - BRONCHITIS [None]
  - EYE DISORDER [None]
  - FATIGUE [None]
  - MALAISE [None]
  - NASAL DISCOMFORT [None]
  - PRODUCTIVE COUGH [None]
  - PYREXIA [None]
  - RASH [None]
  - RESPIRATORY DISORDER [None]
  - SINUSITIS [None]
  - THROAT IRRITATION [None]
